FAERS Safety Report 5472191-5 (Version None)
Quarter: 2007Q3

REPORT INFORMATION
  Report Type: 
  Country: None (occurrence: None)
  Receive Date: 20070926
  Receipt Date: 20070918
  Transmission Date: 20080115
  Serious: Yes (Other)
  Sender: FDA-Public Use
  Company Number: 2007RL000410

PATIENT
  Age: 44 Year
  Sex: Female
  Weight: 120.2032 kg

DRUGS (5)
  1. LOVAZA [Suspect]
     Indication: BLOOD CHOLESTEROL INCREASED
     Dosage: 1 GM; QD; PO
     Route: 048
     Dates: start: 20070801, end: 20070801
  2. LEVOXYL [Concomitant]
  3. LISINOPRIL [Concomitant]
  4. ASPIRIN [Concomitant]
  5. PLAVIX [Concomitant]

REACTIONS (6)
  - CEREBROVASCULAR ACCIDENT [None]
  - DEPRESSION [None]
  - DISTURBANCE IN ATTENTION [None]
  - HIP SWELLING [None]
  - OEDEMA PERIPHERAL [None]
  - OFF LABEL USE [None]
